FAERS Safety Report 13242888 (Version 1)
Quarter: 2017Q1

REPORT INFORMATION
  Report Type: Spontaneous
  Country: US (occurrence: US)
  Receive Date: 20170216
  Receipt Date: 20170216
  Transmission Date: 20170428
  Serious: Yes (Hospitalization, Other)
  Sender: FDA-Public Use
  Company Number: US-ACORDA-ACO_133649_2017

PATIENT
  Age: 69 Year
  Sex: Female
  Weight: 108.39 kg

DRUGS (10)
  1. TIZANIDINE. [Suspect]
     Active Substance: TIZANIDINE
     Indication: HEADACHE
     Dosage: 4 MG, HS
     Route: 048
     Dates: start: 2016
  2. IBRANCE [Suspect]
     Active Substance: PALBOCICLIB
     Indication: BREAST CANCER METASTATIC
     Dosage: 125 MG, QAM 14 DAYS ON AND 14 DAYS OFF
     Route: 048
     Dates: start: 20160204
  3. LETROZOLE. [Concomitant]
     Active Substance: LETROZOLE
     Indication: BREAST CANCER METASTATIC
     Dosage: 2.5 MG, QD
     Route: 048
     Dates: start: 2016
  4. WELLBUTRIN [Concomitant]
     Active Substance: BUPROPION HYDROCHLORIDE
     Indication: DEPRESSION
     Dosage: 100 MG, BID
     Route: 048
     Dates: start: 201607
  5. WARFARIN [Concomitant]
     Active Substance: WARFARIN
     Dosage: 5 MG, QD ON THE OTHER 2 DAYS OF THE WEEK
     Route: 065
  6. BOTOX [Concomitant]
     Active Substance: ONABOTULINUMTOXINA
     Indication: HEADACHE
     Dosage: EVERY 6 WEEKS
     Dates: start: 2016
  7. IBRANCE [Suspect]
     Active Substance: PALBOCICLIB
     Dosage: UNK
  8. OMEPRAZOLE. [Concomitant]
     Active Substance: OMEPRAZOLE
     Indication: HEADACHE
     Dosage: 20 MG, BID
     Route: 048
     Dates: start: 2016
  9. AMITRIPTYLINE [Concomitant]
     Active Substance: AMITRIPTYLINE
     Indication: HEADACHE
     Dosage: 50 MG, HS
     Route: 048
     Dates: start: 2016
  10. WARFARIN [Concomitant]
     Active Substance: WARFARIN
     Indication: DEEP VEIN THROMBOSIS
     Dosage: 7.5 MG, QD FOR 5 DAYS OF THE WEEK
     Route: 065
     Dates: start: 201604

REACTIONS (16)
  - Pain [Unknown]
  - Fibromyalgia [Unknown]
  - Oesophageal infection [Recovered/Resolved]
  - Haemorrhoids [Unknown]
  - Nausea [Recovered/Resolved]
  - Memory impairment [Unknown]
  - Off label use [Unknown]
  - International normalised ratio abnormal [Recovered/Resolved]
  - Depression [Not Recovered/Not Resolved]
  - Breast cancer metastatic [Not Recovered/Not Resolved]
  - Deep vein thrombosis [Recovering/Resolving]
  - Tremor [Unknown]
  - Fatigue [Recovering/Resolving]
  - Breast cancer metastatic [Not Recovered/Not Resolved]
  - Gastrointestinal bacterial overgrowth [Recovered/Resolved]
  - Asthenia [Unknown]

NARRATIVE: CASE EVENT DATE: 2016
